FAERS Safety Report 10446545 (Version 1)
Quarter: 2014Q3

REPORT INFORMATION
  Report Type: Spontaneous
  Country: US (occurrence: None)
  Receive Date: 20140910
  Receipt Date: 20140910
  Transmission Date: 20150326
  Serious: Yes (Hospitalization)
  Sender: FDA-Public Use
  Company Number: None

PATIENT
  Age: 56 Year
  Sex: Female
  Weight: 83.92 kg

DRUGS (11)
  1. 145 COMPOUND LAUZITH [Suspect]
     Active Substance: AZITHROMYCIN\\DIPHENHYDRAMINE HYDROCHLORIDE\LIDOCAINE HYDROCHLORIDE
     Indication: PHARYNGITIS STREPTOCOCCAL
     Dosage: 8 TEASPOONS A DAY, ORAL, LIQUID
     Route: 048
     Dates: start: 20140811, end: 20140815
  2. LEVOTHYROXINE [Concomitant]
     Active Substance: LEVOTHYROXINE
  3. AMITRIPTYLINE [Concomitant]
     Active Substance: AMITRIPTYLINE
  4. BUPROPION XL [Concomitant]
     Active Substance: BUPROPION
  5. PROAIR HFA [Concomitant]
     Active Substance: ALBUTEROL SULFATE
  6. GARLIC. [Concomitant]
     Active Substance: GARLIC
  7. WOMEN^S GUMMY VITAMINS [Concomitant]
  8. CLONAZEPAM. [Concomitant]
     Active Substance: CLONAZEPAM
  9. ZANAFLEX [Concomitant]
     Active Substance: TIZANIDINE HYDROCHLORIDE
  10. FISH OIL [Concomitant]
     Active Substance: FISH OIL
  11. VITAMIN D [Concomitant]
     Active Substance: CHOLECALCIFEROL

REACTIONS (6)
  - Dyspnoea [None]
  - Chest pain [None]
  - Occupational exposure to product [None]
  - Heart rate increased [None]
  - Nausea [None]
  - Confusional state [None]

NARRATIVE: CASE EVENT DATE: 201408
